FAERS Safety Report 4322762-4 (Version None)
Quarter: 2004Q1

REPORT INFORMATION
  Report Type: 
  Country: None (occurrence: None)
  Receive Date: 20040324
  Receipt Date: 20040322
  Transmission Date: 20041129
  Serious: Yes (Hospitalization)
  Sender: FDA-Public Use
  Company Number: DE-GLAXOSMITHKLINE-D0043444A

PATIENT
  Age: 15 Year
  Sex: Male

DRUGS (2)
  1. LAMICTAL [Suspect]
     Indication: EPILEPSY
     Dosage: 75MG PER DAY
     Route: 048
  2. ANTIBIOTIC [Suspect]
     Route: 065

REACTIONS (3)
  - DRUG INTERACTION [None]
  - FALL [None]
  - HEMIPARESIS [None]
